FAERS Safety Report 8952500 (Version 1)
Quarter: 2012Q4

REPORT INFORMATION
  Report Type: 
  Country: JP (occurrence: JP)
  Receive Date: 20121205
  Receipt Date: 20121205
  Transmission Date: 20130627
  Serious: Yes (Other)
  Sender: FDA-Public Use
  Company Number: JP-JNJFOC-20121112852

PATIENT
  Age: 76 Year
  Sex: Male
  Weight: 51 kg

DRUGS (7)
  1. FENTANYL [Suspect]
     Indication: CANCER PAIN
     Route: 042
  2. DUROTEP MT [Suspect]
     Indication: CANCER PAIN
     Route: 062
  3. OXYCONTIN [Suspect]
     Indication: CANCER PAIN
     Route: 048
  4. OXYCONTIN [Suspect]
     Indication: CANCER PAIN
     Route: 048
  5. OXYCONTIN [Suspect]
     Indication: CANCER PAIN
     Route: 048
  6. MORPHINE HYDROCHLORIDE [Suspect]
     Indication: CANCER PAIN
     Route: 042
  7. KETALAR [Concomitant]
     Indication: PRODUCT USED FOR UNKNOWN INDICATION
     Route: 030

REACTIONS (2)
  - Delirium [Unknown]
  - Drug ineffective [Unknown]
